FAERS Safety Report 21555793 (Version 1)
Quarter: 2022Q4

REPORT INFORMATION
  Report Type: Spontaneous
  Country: NO (occurrence: NO)
  Receive Date: 20221104
  Receipt Date: 20221104
  Transmission Date: 20230113
  Serious: Yes (Hospitalization)
  Sender: FDA-Public Use
  Company Number: None

PATIENT
  Age: 46 Year
  Sex: Female

DRUGS (2)
  1. GEMCITABINE [Suspect]
     Active Substance: GEMCITABINE
     Indication: Neoplasm
     Dosage: THE PATIENT HAD RECEIVED 3 TREATMENT COURSES WITH GEMCITABINE/DOCETAXEL EARLIER. 3 MORE WERE PLANNED
     Route: 065
  2. DOCETAXEL [Suspect]
     Active Substance: DOCETAXEL
     Indication: Neoplasm
     Dosage: THE PATIENT HAD RECEIVED 3 TREATMENT COURSES WITH GEMCITABINE/DOCETAXEL EARLIER. 3 MORE WERE PLANNED
     Route: 065

REACTIONS (1)
  - Cerebral infarction [Recovering/Resolving]
